FAERS Safety Report 5020570-2 (Version None)
Quarter: 2006Q2

REPORT INFORMATION
  Report Type: 
  Country: None (occurrence: None)
  Receive Date: 20060602
  Receipt Date: 20060522
  Transmission Date: 20061013
  Serious: Yes (Hospitalization, Other)
  Sender: FDA-Public Use
  Company Number: 8015839

PATIENT
  Age: 76 Year
  Sex: Male

DRUGS (1)
  1. KEPPRA [Suspect]
     Dosage: PO
     Route: 048
     Dates: start: 20060317, end: 20060321

REACTIONS (4)
  - ANAEMIA [None]
  - NEUTROPENIA [None]
  - PLATELET COUNT DECREASED [None]
  - WHITE BLOOD CELL COUNT DECREASED [None]
